FAERS Safety Report 16805292 (Version 1)
Quarter: 2019Q4

REPORT INFORMATION
  Report Type: Spontaneous
  Country: US (occurrence: US)
  Receive Date: 20190913
  Receipt Date: 20190913
  Transmission Date: 20200122
  Serious: No
  Sender: FDA-Public Use
  Company Number: None

PATIENT
  Age: 70 Year
  Sex: Female

DRUGS (3)
  1. LIVALO 4MG QD [Concomitant]
  2. PREGABALIN. [Suspect]
     Active Substance: PREGABALIN
     Route: 048
     Dates: start: 20190801
  3. RANITIDINE 150MG BID [Concomitant]

REACTIONS (3)
  - Nausea [None]
  - Dry mouth [None]
  - Insomnia [None]

NARRATIVE: CASE EVENT DATE: 20190801
